FAERS Safety Report 13560151 (Version 1)
Quarter: 2017Q2

REPORT INFORMATION
  Report Type: Spontaneous
  Country: US (occurrence: US)
  Receive Date: 20170518
  Receipt Date: 20170518
  Transmission Date: 20170830
  Serious: No
  Sender: FDA-Public Use
  Company Number: US-PFIZER INC-2017214275

PATIENT
  Age: 69 Year
  Sex: Female
  Weight: 68 kg

DRUGS (2)
  1. SYNTHROID [Concomitant]
     Active Substance: LEVOTHYROXINE SODIUM
     Dosage: UNK
  2. ADVIL [Suspect]
     Active Substance: IBUPROFEN
     Indication: BACK PAIN
     Dosage: 800 MG, DAILY (4 TABLETS)

REACTIONS (7)
  - Dyspepsia [Recovering/Resolving]
  - Nausea [Recovering/Resolving]
  - Product colour issue [Unknown]
  - Gastrooesophageal reflux disease [Recovering/Resolving]
  - Product coating issue [Unknown]
  - Ear discomfort [Recovering/Resolving]
  - Poor quality drug administered [Unknown]

NARRATIVE: CASE EVENT DATE: 20170512
